FAERS Safety Report 6623874-2 (Version None)
Quarter: 2010Q1

REPORT INFORMATION
  Report Type: 
  Country: None (occurrence: None)
  Receive Date: 20100310
  Receipt Date: 20100303
  Transmission Date: 20100710
  Serious: Yes (Other)
  Sender: FDA-Public Use
  Company Number: PHEH2007US12316

PATIENT
  Sex: Female

DRUGS (16)
  1. ELIDEL [Suspect]
     Indication: DERMATITIS
     Dosage: 30 G, UNK
     Route: 061
     Dates: start: 20020901
  2. PREDNISONE [Concomitant]
  3. ZANTAC [Concomitant]
  4. ZOFRAN [Concomitant]
  5. PHENERGAN ^AVENTIS PHARMA^ [Concomitant]
  6. BENADRYL ^ACHE^ [Concomitant]
  7. BACTRIM [Concomitant]
  8. VINCRISTINE [Concomitant]
  9. DOXORUBICIN [Concomitant]
  10. BLEOMYCIN SULFATE [Concomitant]
  11. ETOPOSIDE [Concomitant]
  12. CYCLOPHOSPHAMIDE [Concomitant]
  13. ACETAMINOPHEN [Concomitant]
  14. DIPHENHYDRAMINE HYDROCHLORIDE [Concomitant]
  15. ONDANSETRON [Concomitant]
  16. PROMETHAZINE [Concomitant]

REACTIONS (2)
  - HODGKIN'S DISEASE [None]
  - HYPERSENSITIVITY [None]
